FAERS Safety Report 13781937 (Version 1)
Quarter: 2017Q3

REPORT INFORMATION
  Report Type: Spontaneous
  Country: CA (occurrence: CA)
  Receive Date: 20170724
  Receipt Date: 20170724
  Transmission Date: 20171127
  Serious: Yes (Other)
  Sender: FDA-Public Use
  Company Number: CA-PFIZER INC-2017313496

PATIENT
  Age: 51 Year
  Sex: Male

DRUGS (11)
  1. ROSUVASTATIN. [Concomitant]
     Active Substance: ROSUVASTATIN
     Dosage: 20 MG, AT BEDTIME
  2. DILTIAZEM HCL [Concomitant]
     Active Substance: DILTIAZEM HYDROCHLORIDE
     Dosage: 240 MG, DAILY
  3. LANTUS [Concomitant]
     Active Substance: INSULIN GLARGINE
     Dosage: 48 IU, AT BEDTIME
  4. SANDOSTATIN [Concomitant]
     Active Substance: OCTREOTIDE ACETATE
     Dosage: 30 MG, EVERY 4 WEEKS
  5. TESTOSTERONE. [Concomitant]
     Active Substance: TESTOSTERONE
     Dosage: 1 ML, WEEKLY
     Dates: end: 2016
  6. METFORMIN [Concomitant]
     Active Substance: METFORMIN HYDROCHLORIDE
     Dosage: 500 MG, 2X/DAY
  7. VALSARTAN. [Concomitant]
     Active Substance: VALSARTAN
     Dosage: 160 MG, AM
  8. RABEPRAZOLE SANDOZ [Concomitant]
     Active Substance: RABEPRAZOLE
     Dosage: 20 MG, 1X/DAY
  9. SOMAVERT [Suspect]
     Active Substance: PEGVISOMANT
     Indication: ACROMEGALY
     Dosage: 20 MG, 1X/DAY
     Route: 058
     Dates: start: 20160209
  10. ASA [Concomitant]
     Active Substance: ASPIRIN
     Dosage: 81 MG, UNK
  11. TIAZAC XC [Concomitant]
     Active Substance: DILTIAZEM HYDROCHLORIDE
     Dosage: 240 MG, (AM)

REACTIONS (3)
  - Muscular weakness [Unknown]
  - Pain in extremity [Unknown]
  - Prostate cancer [Unknown]
